FAERS Safety Report 7304138-0 (Version None)
Quarter: 2011Q1

REPORT INFORMATION
  Report Type: 
  Country: None (occurrence: None)
  Receive Date: 20110221
  Receipt Date: 20110217
  Transmission Date: 20110831
  Serious: Yes (Life-Threatening, Hospitalization, Other)
  Sender: FDA-Public Use
  Company Number: CA-ABBOTT-11P-028-0695781-00

PATIENT
  Sex: Female

DRUGS (1)
  1. HUMIRA [Suspect]
     Indication: CROHN'S DISEASE
     Route: 058
     Dates: start: 20100101, end: 20100415

REACTIONS (6)
  - BRONCHOPULMONARY ASPERGILLOSIS [None]
  - GASTROINTESTINAL ANASTOMOTIC LEAK [None]
  - DRUG HYPERSENSITIVITY [None]
  - CROHN'S DISEASE [None]
  - CONDITION AGGRAVATED [None]
  - OPPORTUNISTIC INFECTION [None]
